FAERS Safety Report 9657842 (Version 2)
Quarter: 2013Q4

REPORT INFORMATION
  Report Type: Spontaneous
  Country: IT (occurrence: None)
  Receive Date: 20131029
  Receipt Date: 20131220
  Transmission Date: 20140711
  Serious: Yes (Hospitalization)
  Sender: FDA-Public Use
  Company Number: AUR-APL-2013-08748

PATIENT
  Age: 74 Year
  Sex: Female
  Weight: 70 kg

DRUGS (9)
  1. SERTRALINE (SERTRALINE) [Suspect]
     Indication: DEPRESSION
     Dosage: 50MG (50MG, 1 IN 1 D) ORAL
     Route: 048
     Dates: start: 20130905, end: 20130908
  2. FLUSS [Suspect]
     Indication: MYOCARDIAL ISCHAEMIA
     Dosage: 1 DOSAGE FORMS (1 DOSAGE FORMS, 1 IN 1 D) ORAL
     Route: 048
     Dates: start: 20090101, end: 20130908
  3. GLUCOPHAGE (METFORMIN HYDROCHLORIDE) [Concomitant]
  4. HALCION (TRIAZOLAM) [Concomitant]
  5. TENOMAX (ATENOLOL) [Concomitant]
  6. UNIPRIL (ENALAPRIL MALEATE) [Concomitant]
  7. CARDURA (DOXAZOSIN MESILATE) [Concomitant]
  8. CARDIOASPIRIN (ACETYLSALICYLIC ACID) [Concomitant]
  9. MEDIPO (SIMVASTATIN) [Concomitant]

REACTIONS (5)
  - Hyponatraemia [None]
  - Decreased appetite [None]
  - Oropharyngeal pain [None]
  - Dysstasia [None]
  - Pelvic pain [None]
